FAERS Safety Report 13989304 (Version 6)
Quarter: 2018Q4

REPORT INFORMATION
  Report Type: Report from Study
  Country: IT (occurrence: IT)
  Receive Date: 20170920
  Receipt Date: 20181023
  Transmission Date: 20190204
  Serious: Yes (Hospitalization)
  Sender: FDA-Public Use
  Company Number: IT-ROCHE-1993398

PATIENT
  Age: 70 Year
  Sex: Male
  Weight: 80 kg

DRUGS (17)
  1. TRIATEC (ITALY) [Concomitant]
     Active Substance: RAMIPRIL
     Indication: HYPERTENSION
     Route: 048
  2. NORVASC [Concomitant]
     Active Substance: AMLODIPINE BESYLATE
     Indication: HYPERTENSION
     Route: 048
  3. CALCIUM GLUCONATE. [Concomitant]
     Active Substance: CALCIUM GLUCONATE
     Indication: HYPOCALCAEMIA
     Route: 042
     Dates: start: 20170822, end: 20170823
  4. BISOPROLOL [Concomitant]
     Active Substance: BISOPROLOL
     Indication: HYPERTENSION
     Route: 048
     Dates: start: 20170906
  5. INEGY [Concomitant]
     Active Substance: EZETIMIBE\SIMVASTATIN
     Indication: HYPERCHOLESTEROLAEMIA
     Route: 048
     Dates: start: 20171003
  6. GEMCITABINE [Suspect]
     Active Substance: GEMCITABINE\GEMCITABINE HYDROCHLORIDE
     Indication: TRANSITIONAL CELL CARCINOMA
     Dosage: DOSE OF LAST GEMCITABINE ADMINISTERED WAS 1552 MG/M2 ?ON 23/AUG/2017, THE PATIENT RECEIVED MOST RECE
     Route: 042
     Dates: start: 20170731
  7. CARBOPLATIN. [Suspect]
     Active Substance: CARBOPLATIN
     Indication: TRANSITIONAL CELL CARCINOMA
     Dosage: DOSE OF LAST CARBOPLATIN ADMINISTERED WAS 323.33 MG ?ON 23/AUG/2017, THE PATIENT RECEIVED MOST RECEN
     Route: 042
     Dates: start: 20170731
  8. CALCIUM GLUCONATE. [Concomitant]
     Active Substance: CALCIUM GLUCONATE
     Route: 042
     Dates: start: 20171005, end: 20171005
  9. ONDANSETRON [Concomitant]
     Active Substance: ONDANSETRON
     Indication: NAUSEA
     Route: 042
     Dates: start: 20171004, end: 20171005
  10. INEGY [Concomitant]
     Active Substance: EZETIMIBE\SIMVASTATIN
     Route: 048
     Dates: start: 20170906
  11. BLOOD TRANSFUSION [Concomitant]
     Active Substance: HUMAN RED BLOOD CELL
     Route: 042
     Dates: start: 20170827, end: 20170827
  12. ATEZOLIZUMAB. [Suspect]
     Active Substance: ATEZOLIZUMAB
     Indication: TRANSITIONAL CELL CARCINOMA
     Dosage: ON 23/AUG/2017, THE PATIENT RECEIVED MOST RECENT DOSE OF ATEZOLIZUMAB PRIOR TO SAE ONSET
     Route: 042
     Dates: start: 20170731
  13. LANSOPRAZOLE. [Concomitant]
     Active Substance: LANSOPRAZOLE
     Route: 048
  14. BLOOD TRANSFUSION [Concomitant]
     Active Substance: HUMAN RED BLOOD CELL
     Indication: ANAEMIA
     Route: 042
     Dates: start: 20170804, end: 20170804
  15. CARDIOASPIRINA [Concomitant]
     Active Substance: ASPIRIN
     Indication: ACUTE MYOCARDIAL INFARCTION
     Route: 048
     Dates: start: 1987
  16. CALCIUM GLUCONATE. [Concomitant]
     Active Substance: CALCIUM GLUCONATE
     Route: 042
     Dates: start: 20170913, end: 20170913
  17. RANEXA [Concomitant]
     Active Substance: RANOLAZINE
     Indication: ACUTE MYOCARDIAL INFARCTION
     Route: 048
     Dates: start: 1987

REACTIONS (1)
  - Acute coronary syndrome [Recovered/Resolved]

NARRATIVE: CASE EVENT DATE: 20170826
